FAERS Safety Report 5396605-4 (Version None)
Quarter: 2007Q3

REPORT INFORMATION
  Report Type: 
  Country: None (occurrence: None)
  Receive Date: 20070725
  Receipt Date: 20070717
  Transmission Date: 20080115
  Serious: Yes (Hospitalization)
  Sender: FDA-Public Use
  Company Number: PHHO2007MX12117

PATIENT
  Age: 55 Year
  Sex: Female

DRUGS (1)
  1. DIOVAN [Suspect]
     Indication: HYPERTENSION
     Dosage: 2 TABLETS (80 MG) PER DAY
     Route: 048
     Dates: start: 20061101

REACTIONS (1)
  - RENAL FAILURE [None]
